FAERS Safety Report 23204068 (Version 1)
Quarter: 2023Q4

REPORT INFORMATION
  Report Type: Spontaneous
  Country: GB (occurrence: GB)
  Receive Date: 20231120
  Receipt Date: 20231120
  Transmission Date: 20240109
  Serious: Yes (Hospitalization)
  Sender: FDA-Public Use
  Company Number: GB-BIOGEN-2023BI01236442

PATIENT
  Sex: Male

DRUGS (1)
  1. DALFAMPRIDINE [Suspect]
     Active Substance: DALFAMPRIDINE
     Indication: Multiple sclerosis
     Dosage: DAILY
     Route: 050

REACTIONS (3)
  - Loss of control of legs [Unknown]
  - COVID-19 [Unknown]
  - Product dose omission in error [Unknown]
